FAERS Safety Report 9074186 (Version 1)
Quarter: 2013Q1

REPORT INFORMATION
  Report Type: Report from Study
  Country: US (occurrence: US)
  Receive Date: 20130128
  Receipt Date: 20130128
  Transmission Date: 20140127
  Serious: No
  Sender: FDA-Public Use
  Company Number: US-ABBOTT-12P-163-0916221-00

PATIENT
  Sex: Female
  Weight: 72.64 kg

DRUGS (5)
  1. HUMIRA 40 MG/ 0.8 ML PRE-FILLED SYRINGE [Suspect]
     Indication: ANKYLOSING SPONDYLITIS
     Route: 058
     Dates: start: 200905, end: 201111
  2. HUMIRA 40 MG/ 0.8 ML PRE-FILLED SYRINGE [Suspect]
     Dosage: ONE DOSE
     Route: 058
     Dates: start: 201111, end: 201112
  3. HUMIRA 40 MG/ 0.8 ML PRE-FILLED SYRINGE [Suspect]
     Dosage: ONE DOSE
     Route: 058
     Dates: start: 201112, end: 201201
  4. HUMIRA 40 MG/ 0.8 ML PRE-FILLED SYRINGE [Suspect]
     Dosage: ONE DOSE
     Route: 058
     Dates: start: 201201, end: 201202
  5. HUMIRA 40 MG/ 0.8 ML PRE-FILLED SYRINGE [Suspect]
     Route: 058
     Dates: start: 201202

REACTIONS (8)
  - Malaise [Recovered/Resolved]
  - Cough [Recovered/Resolved]
  - Throat irritation [Recovered/Resolved]
  - Seasonal allergy [Recovered/Resolved]
  - Ear pain [Recovered/Resolved]
  - Cough [Recovered/Resolved]
  - Headache [Recovered/Resolved]
  - Sinus congestion [Recovered/Resolved]
